FAERS Safety Report 16642657 (Version 1)
Quarter: 2019Q3

REPORT INFORMATION
  Report Type: Spontaneous
  Country: AT (occurrence: AT)
  Receive Date: 20190729
  Receipt Date: 20190729
  Transmission Date: 20191004
  Serious: Yes (Hospitalization, Disabling)
  Sender: FDA-Public Use
  Company Number: AT-JNJFOC-20190727601

PATIENT
  Sex: Male
  Weight: 104 kg

DRUGS (1)
  1. SIMPONI [Suspect]
     Active Substance: GOLIMUMAB
     Indication: SPONDYLITIS
     Route: 058
     Dates: start: 201203

REACTIONS (1)
  - Neoplasm prostate [Recovered/Resolved with Sequelae]

NARRATIVE: CASE EVENT DATE: 20190605
